FAERS Safety Report 6657852-4 (Version None)
Quarter: 2010Q1

REPORT INFORMATION
  Report Type: 
  Country: None (occurrence: None)
  Receive Date: 20100330
  Receipt Date: 20100316
  Transmission Date: 20100710
  Serious: Yes (Hospitalization)
  Sender: FDA-Public Use
  Company Number: US-ROCHE-687671

PATIENT
  Sex: Female
  Weight: 77.1 kg

DRUGS (1)
  1. BONIVA [Suspect]
     Indication: OSTEOPOROSIS
     Route: 065
     Dates: start: 20090920

REACTIONS (14)
  - ABASIA [None]
  - ABDOMINAL PAIN [None]
  - BACK PAIN [None]
  - BLOOD PRESSURE INCREASED [None]
  - BONE PAIN [None]
  - DYSSTASIA [None]
  - ILL-DEFINED DISORDER [None]
  - INJURY [None]
  - MUSCLE CONTRACTURE [None]
  - MUSCLE SPASMS [None]
  - PAIN [None]
  - POST-TRAUMATIC PAIN [None]
  - RASH [None]
  - RESPIRATORY DISORDER [None]
